FAERS Safety Report 13824667 (Version 1)
Quarter: 2017Q3

REPORT INFORMATION
  Report Type: Spontaneous
  Country: US (occurrence: US)
  Receive Date: 20170802
  Receipt Date: 20170802
  Transmission Date: 20171127
  Serious: No
  Sender: FDA-Public Use
  Company Number: US-PFIZER INC-2017334435

PATIENT
  Age: 16 Month
  Sex: Male
  Weight: 10.43 kg

DRUGS (4)
  1. GENOTROPIN MQ [Suspect]
     Active Substance: SOMATROPIN
     Indication: PRADER-WILLI SYNDROME
     Dosage: 0.4 MG, 1X/DAY
     Route: 058
     Dates: start: 201706
  2. LEVOCARNITINE. [Concomitant]
     Active Substance: LEVOCARNITINE
     Indication: PRADER-WILLI SYNDROME
     Dosage: 5.5 ML, DAILY
     Dates: start: 201704
  3. POLY-VI-SOL WITH IRON [Concomitant]
     Active Substance: IRON\VITAMINS
     Dosage: 1 ML, DAILY
     Dates: start: 201605
  4. COENZYME Q10 [Concomitant]
     Active Substance: UBIDECARENONE
     Dosage: 2.5 ML, DAILY
     Dates: start: 201704

REACTIONS (2)
  - Asthenia [Unknown]
  - Hypersomnia [Unknown]

NARRATIVE: CASE EVENT DATE: 201707
